FAERS Safety Report 25750717 (Version 1)
Quarter: 2025Q3

REPORT INFORMATION
  Report Type: Report from Study
  Country: US (occurrence: US)
  Receive Date: 20250902
  Receipt Date: 20250902
  Transmission Date: 20251021
  Serious: Yes (Other)
  Sender: ABBVIE
  Company Number: US-ABBVIE-6396067

PATIENT
  Age: 61 Year
  Sex: Male

DRUGS (18)
  1. HUMIRA [Suspect]
     Active Substance: ADALIMUMAB
     Indication: Psoriatic arthropathy
     Route: 058
     Dates: start: 2024
  2. HUMIRA [Suspect]
     Active Substance: ADALIMUMAB
     Indication: Spinal osteoarthritis
     Route: 058
     Dates: start: 202503, end: 20250710
  3. INSULIN NOS [Concomitant]
     Active Substance: INSULIN NOS
     Indication: Diabetes mellitus
  4. OTEZLA [Concomitant]
     Active Substance: APREMILAST
     Indication: Psoriatic arthropathy
  5. VERAPAMIL HCL [Concomitant]
     Active Substance: VERAPAMIL HYDROCHLORIDE
     Indication: Product used for unknown indication
  6. FARXIGA [Concomitant]
     Active Substance: DAPAGLIFLOZIN PROPANEDIOL
     Indication: Chronic kidney disease
  7. METHIMAZOLE [Concomitant]
     Active Substance: METHIMAZOLE
     Indication: Product used for unknown indication
  8. VITAMIN D3 [Concomitant]
     Active Substance: CHOLECALCIFEROL
     Indication: Product used for unknown indication
  9. ZINC [Concomitant]
     Active Substance: ZINC
     Indication: Product used for unknown indication
  10. VITAMIN C [Concomitant]
     Active Substance: ASCORBIC ACID
     Indication: Product used for unknown indication
  11. BENADRYL ALLERGY [Concomitant]
     Active Substance: DIPHENHYDRAMINE HYDROCHLORIDE
     Indication: Product used for unknown indication
  12. VITAMINS [Concomitant]
     Active Substance: VITAMINS
     Indication: Product used for unknown indication
  13. TYLENOL [Concomitant]
     Active Substance: ACETAMINOPHEN
     Indication: Pain
  14. OXYCODONE [Concomitant]
     Active Substance: OXYCODONE
     Indication: Pain
  15. ATORVASTATIN [Concomitant]
     Active Substance: ATORVASTATIN
     Indication: Blood pressure measurement
  16. VERAPAMIL [Concomitant]
     Active Substance: VERAPAMIL HYDROCHLORIDE
     Indication: Blood pressure measurement
  17. HYDROXYZINE [Concomitant]
     Active Substance: HYDROXYZINE HYDROCHLORIDE
     Indication: Pruritus
  18. IBUPROFEN [Concomitant]
     Active Substance: IBUPROFEN
     Indication: Pain

REACTIONS (6)
  - Thyroid mass [Recovering/Resolving]
  - Injection site injury [Recovering/Resolving]
  - Vocal cord paresis [Not Recovered/Not Resolved]
  - Post procedural swelling [Not Recovered/Not Resolved]
  - Speech disorder [Not Recovered/Not Resolved]
  - Procedural pain [Not Recovered/Not Resolved]

NARRATIVE: CASE EVENT DATE: 20250101
